FAERS Safety Report 5500409-9 (Version None)
Quarter: 2007Q4

REPORT INFORMATION
  Report Type: 
  Country: None (occurrence: None)
  Receive Date: 20071029
  Receipt Date: 20071018
  Transmission Date: 20080405
  Serious: Yes (Other)
  Sender: FDA-Public Use
  Company Number: ES-JNJFOC-20071004404

PATIENT
  Age: 68 Year
  Sex: Female

DRUGS (2)
  1. TAVANIC [Suspect]
     Route: 065
  2. TAVANIC [Suspect]
     Indication: DRUG USE FOR UNKNOWN INDICATION
     Route: 065

REACTIONS (2)
  - MYALGIA [None]
  - PARESIS [None]
